FAERS Safety Report 23192267 (Version 1)
Quarter: 2023Q4

REPORT INFORMATION
  Report Type: Spontaneous
  Country: TR (occurrence: TR)
  Receive Date: 20231116
  Receipt Date: 20231116
  Transmission Date: 20240110
  Serious: Yes (Other)
  Sender: FDA-Public Use
  Company Number: TR-002147023-NVSC2023TR240098

PATIENT
  Age: 7 Year
  Sex: Male

DRUGS (2)
  1. CYCLOSPORINE [Suspect]
     Active Substance: CYCLOSPORINE
     Indication: Nephrotic syndrome
     Dosage: 75 MG (3 IN THE MORNING AND 2 IN THE EVENING)
     Route: 065
     Dates: start: 2018
  2. CYCLOSPORINE [Suspect]
     Active Substance: CYCLOSPORINE
     Dosage: (SOMETIMES 75 MG AND SOMETIME 50 MG)
     Route: 065
     Dates: end: 202203

REACTIONS (3)
  - Cerebral ataxia [Unknown]
  - Ill-defined disorder [Unknown]
  - Cerebellar atrophy [Unknown]
